FAERS Safety Report 4849707-2 (Version None)
Quarter: 2005Q4

REPORT INFORMATION
  Report Type: 
  Country: None (occurrence: None)
  Receive Date: 20051207
  Receipt Date: 20051122
  Transmission Date: 20060501
  Serious: Yes (Death, Hospitalization)
  Sender: FDA-Public Use
  Company Number: PAR_0420_2005

PATIENT
  Age: 80 Year
  Sex: Male

DRUGS (4)
  1. ALLOPURINOL [Suspect]
     Indication: HYPERURICAEMIA
     Dosage: 300 MG QDAY
  2. PREDNISONE TAB [Suspect]
     Dosage: 60 MG QDAY
  3. OMEPRAZOLE [Concomitant]
  4. FUROSEMIDE [Concomitant]

REACTIONS (13)
  - CHOLESTASIS [None]
  - DRUG HYPERSENSITIVITY [None]
  - DRUG PRESCRIBING ERROR [None]
  - EOSINOPHIL PERCENTAGE INCREASED [None]
  - GRANULOMATOUS LIVER DISEASE [None]
  - HEPATIC ENCEPHALOPATHY [None]
  - HEPATIC FAILURE [None]
  - HEPATOMEGALY [None]
  - INCORRECT DOSE ADMINISTERED [None]
  - PYREXIA [None]
  - SKIN EXFOLIATION [None]
  - SKIN LESION [None]
  - WHITE BLOOD CELL COUNT INCREASED [None]
